FAERS Safety Report 7709173-6 (Version None)
Quarter: 2011Q3

REPORT INFORMATION
  Report Type: 
  Country: None (occurrence: None)
  Receive Date: 20110825
  Receipt Date: 20110816
  Transmission Date: 20111222
  Serious: Yes (Hospitalization)
  Sender: FDA-Public Use
  Company Number: PHHY2011FR61042

PATIENT
  Sex: Male

DRUGS (6)
  1. VALPROIC ACID [Concomitant]
     Dosage: 300 MG, UNK
  2. PREVISCAN [Concomitant]
     Dosage: UNK UKN, UNK
  3. VITAMIN B1 TAB [Concomitant]
     Dosage: UNK UKN, UNK
  4. HYZAAR [Suspect]
     Indication: HYPERTENSION
     Dosage: 50 MG, BID
     Route: 048
     Dates: start: 20110704
  5. EXELON [Suspect]
     Indication: DEMENTIA ALZHEIMER'S TYPE
     Dosage: 9.5 MG, ONE PATCH DAILY
     Route: 062
     Dates: start: 20090122
  6. VITAMIN B6 [Concomitant]
     Dosage: UNK UKN, UNK

REACTIONS (4)
  - MALAISE [None]
  - HYPERHIDROSIS [None]
  - BLOOD PRESSURE SYSTOLIC DECREASED [None]
  - HEART RATE DECREASED [None]
